FAERS Safety Report 25510498 (Version 1)
Quarter: 2025Q3

REPORT INFORMATION
  Report Type: Spontaneous
  Country: AU (occurrence: AU)
  Receive Date: 20250703
  Receipt Date: 20250703
  Transmission Date: 20251021
  Serious: Yes (Death, Other)
  Sender: JOHNSON AND JOHNSON
  Company Number: AU-JNJFOC-20250701964

PATIENT
  Age: 77 Year

DRUGS (4)
  1. MACITENTAN [Suspect]
     Active Substance: MACITENTAN
     Indication: Pulmonary arterial hypertension
     Route: 048
  2. MACITENTAN [Suspect]
     Active Substance: MACITENTAN
     Indication: Connective tissue disorder
  3. MACITENTAN [Suspect]
     Active Substance: MACITENTAN
     Indication: Connective tissue disease-associated interstitial lung disease
  4. TADALAFIL [Concomitant]
     Active Substance: TADALAFIL
     Indication: Product used for unknown indication

REACTIONS (8)
  - Death [Fatal]
  - Pulmonary fibrosis [Unknown]
  - Oxygen saturation decreased [Unknown]
  - Interstitial lung disease [Unknown]
  - Lymphadenopathy [Unknown]
  - Alveolitis [Unknown]
  - Right atrial dilatation [Unknown]
  - Right ventricular enlargement [Unknown]
